FAERS Safety Report 17440080 (Version 3)
Quarter: 2020Q2

REPORT INFORMATION
  Report Type: Spontaneous
  Country: JP (occurrence: JP)
  Receive Date: 20200220
  Receipt Date: 20200402
  Transmission Date: 20200713
  Serious: Yes (Life-Threatening, Hospitalization, Disabling)
  Sender: FDA-Public Use
  Company Number: JP-ELI_LILLY_AND_COMPANY-JP202002008333

PATIENT
  Age: 85 Year
  Sex: Male
  Weight: 50 kg

DRUGS (6)
  1. DULOXETINE HYDROCHLORIDE. [Suspect]
     Active Substance: DULOXETINE HYDROCHLORIDE
     Indication: POST HERPETIC NEURALGIA
     Dosage: 20 MG, DAILY
     Route: 048
     Dates: start: 20200117, end: 20200131
  2. LYRICA [Suspect]
     Active Substance: PREGABALIN
     Dosage: 150 MG, DAILY
     Route: 048
     Dates: start: 20200115, end: 20200131
  3. VICCLOX [ACICLOVIR] [Concomitant]
     Active Substance: ACYCLOVIR
     Indication: HERPES ZOSTER
     Dosage: 250 MG, BID
     Route: 042
     Dates: start: 20200114, end: 20200121
  4. AMLODIPINE [Suspect]
     Active Substance: AMLODIPINE BESYLATE
     Indication: PRODUCT USED FOR UNKNOWN INDICATION
     Route: 048
  5. LYRICA [Suspect]
     Active Substance: PREGABALIN
     Indication: POST HERPETIC NEURALGIA
     Dosage: 100 MG, DAILY
     Route: 048
     Dates: start: 20200111, end: 20200114
  6. LUNESTA [Suspect]
     Active Substance: ESZOPICLONE
     Indication: PRODUCT USED FOR UNKNOWN INDICATION
     Route: 048

REACTIONS (6)
  - Altered state of consciousness [Recovered/Resolved]
  - Malaise [Recovered/Resolved]
  - Acute kidney injury [Recovered/Resolved]
  - Off label use [Recovered/Resolved]
  - Decreased appetite [Recovered/Resolved]
  - Toxic skin eruption [Recovered/Resolved]

NARRATIVE: CASE EVENT DATE: 20200117
